FAERS Safety Report 6013639-7 (Version None)
Quarter: 2008Q4

REPORT INFORMATION
  Report Type: 
  Country: None (occurrence: None)
  Receive Date: 20081219
  Receipt Date: 20081216
  Transmission Date: 20090506
  Serious: Yes (Hospitalization)
  Sender: FDA-Public Use
  Company Number: US-BRISTOL-MYERS SQUIBB COMPANY-14288989

PATIENT
  Age: 73 Year
  Sex: Female
  Weight: 62 kg

DRUGS (11)
  1. CARBOPLATIN [Suspect]
     Indication: NON-SMALL CELL LUNG CANCER
     Dosage: INITIATED ON: 16-JUL-2008 LAST DOSE ON: 22-JUL-2008 DRUG INTERRUPTED: 28-JUL-2008
     Route: 042
     Dates: start: 20080722, end: 20080722
  2. ABRAXANE [Suspect]
     Indication: NON-SMALL CELL LUNG CANCER
     Dosage: INITIATED ON: 16-JUL-2008 LAST DOSE ON: 22-JUL-2008 DRUG INTERRUPTED: 29-JUL-2008
     Route: 042
     Dates: start: 20080722, end: 20080722
  3. METOPROLOL [Concomitant]
     Route: 048
  4. LISINOPRIL [Concomitant]
     Route: 048
  5. HYDROCHLOROTHIAZIDE [Concomitant]
     Route: 048
  6. LIPITOR [Concomitant]
     Route: 048
  7. ASPIRIN [Concomitant]
     Route: 048
  8. COMPAZINE [Concomitant]
     Route: 048
     Dates: start: 20080702
  9. ZOFRAN [Concomitant]
     Route: 042
     Dates: start: 20080716, end: 20080716
  10. ANZEMET [Concomitant]
     Route: 048
     Dates: start: 20080722, end: 20080722
  11. MULTI-VITAMIN [Concomitant]
     Indication: VITAMIN SUPPLEMENTATION
     Dosage: 1 DOSAGE FORM = 1 (UNITS NOT SPECIFIED)
     Route: 048

REACTIONS (4)
  - ANAEMIA [None]
  - CYSTITIS [None]
  - DEHYDRATION [None]
  - NAUSEA [None]
